FAERS Safety Report 6802883-4 (Version None)
Quarter: 2010Q2

REPORT INFORMATION
  Report Type: 
  Country: None (occurrence: None)
  Receive Date: 20100628
  Receipt Date: 20100622
  Transmission Date: 20101027
  Serious: Yes (Death, Hospitalization)
  Sender: FDA-Public Use
  Company Number: US-ASTRAZENECA-2010SE29587

PATIENT
  Age: 12 Year
  Sex: Male
  Weight: 31.8 kg

DRUGS (4)
  1. SEROQUEL [Suspect]
     Route: 048
  2. ZYPREXA [Suspect]
     Route: 065
  3. KLONOPIN [Suspect]
     Route: 065
  4. DEPAKOTE [Suspect]
     Route: 065

REACTIONS (3)
  - OVERDOSE [None]
  - RESPIRATORY ARREST [None]
  - SEDATION [None]
